FAERS Safety Report 7920965-0 (Version None)
Quarter: 2011Q4

REPORT INFORMATION
  Report Type: 
  Country: None (occurrence: None)
  Receive Date: 20111117
  Receipt Date: 20111107
  Transmission Date: 20120403
  Serious: Yes (Other)
  Sender: FDA-Public Use
  Company Number: US-MILLENNIUM PHARMACEUTICALS, INC.-2011-05620

PATIENT

DRUGS (9)
  1. THALIDOMIDE [Suspect]
     Indication: MULTIPLE MYELOMA
  2. ETOPOSIDE [Suspect]
     Indication: MULTIPLE MYELOMA
  3. DEXAMETHASONE [Suspect]
     Indication: MULTIPLE MYELOMA
  4. CYCLOPHOSPHAMIDE [Suspect]
     Indication: MULTIPLE MYELOMA
  5. CISPLATIN [Suspect]
     Indication: MULTIPLE MYELOMA
  6. DOXORUBICIN HCL [Suspect]
     Indication: MULTIPLE MYELOMA
  7. LENALIDOMIDE [Suspect]
     Indication: MULTIPLE MYELOMA
  8. VELCADE [Suspect]
     Indication: MULTIPLE MYELOMA
  9. MELPHALAN HYDROCHLORIDE [Suspect]
     Indication: MULTIPLE MYELOMA
     Dosage: 200 MG/M2, UNK

REACTIONS (1)
  - NEOPLASM [None]
